FAERS Safety Report 11052774 (Version 1)
Quarter: 2015Q2

REPORT INFORMATION
  Report Type: Spontaneous
  Country: TR (occurrence: None)
  Receive Date: 20150417
  Receipt Date: 20150417
  Transmission Date: 20150821
  Serious: Yes (Hospitalization)
  Sender: FDA-Public Use
  Company Number: 2015SCAL000143

PATIENT
  Age: 11 Year
  Sex: Female

DRUGS (2)
  1. FLUOXETINE HYDROCHLORIDE (FLUOXETINE HYDROCHLORIDE) [Suspect]
     Active Substance: FLUOXETINE HYDROCHLORIDE
     Indication: OBSESSIVE-COMPULSIVE DISORDER
  2. FLUOXETINE HYDROCHLORIDE (FLUOXETINE HYDROCHLORIDE) [Suspect]
     Active Substance: FLUOXETINE HYDROCHLORIDE
     Indication: SOCIAL PHOBIA

REACTIONS (4)
  - Bursitis [None]
  - Vaginal haemorrhage [None]
  - Contusion [None]
  - Haemorrhagic disorder [None]
